FAERS Safety Report 20165746 (Version 1)
Quarter: 2021Q4

REPORT INFORMATION
  Report Type: Spontaneous
  Country: US (occurrence: None)
  Receive Date: 20211208
  Receipt Date: 20211208
  Transmission Date: 20220303
  Serious: Yes (Other)
  Sender: FDA-Public Use
  Company Number: None

PATIENT
  Age: 34 Year
  Sex: Female
  Weight: 41.28 kg

DRUGS (3)
  1. QUETIAPINE FUMARATE [Suspect]
     Active Substance: QUETIAPINE FUMARATE
     Indication: Depression
     Dosage: FREQUENCY : AT BEDTIME;?
     Route: 048
  2. QUETIAPINE FUMARATE [Suspect]
     Active Substance: QUETIAPINE FUMARATE
     Indication: Psychotic disorder
  3. ZOLOFT [Concomitant]
     Active Substance: SERTRALINE HYDROCHLORIDE

REACTIONS (4)
  - Suicidal ideation [None]
  - Heart rate increased [None]
  - Fatigue [None]
  - Orthostatic hypotension [None]

NARRATIVE: CASE EVENT DATE: 20210115
